FAERS Safety Report 7485809-2 (Version None)
Quarter: 2011Q2

REPORT INFORMATION
  Report Type: 
  Country: None (occurrence: None)
  Receive Date: 20110517
  Receipt Date: 20110503
  Transmission Date: 20111010
  Serious: Yes (Other)
  Sender: FDA-Public Use
  Company Number: DE-JNJFOC-20110502180

PATIENT
  Age: 22 Year
  Sex: Female

DRUGS (2)
  1. REMICADE [Suspect]
     Indication: PRODUCT USED FOR UNKNOWN INDICATION
     Route: 042
     Dates: start: 20110503
  2. REMICADE [Suspect]
     Route: 042

REACTIONS (4)
  - DYSPNOEA [None]
  - HYPOAESTHESIA FACIAL [None]
  - PARAESTHESIA [None]
  - INFUSION RELATED REACTION [None]
